FAERS Safety Report 8789791 (Version 1)
Quarter: 2012Q4

REPORT INFORMATION
  Report Type: 
  Country: US (occurrence: US)
  Receive Date: 20120917
  Receipt Date: 20120917
  Transmission Date: 20130627
  Serious: Yes (Hospitalization)
  Sender: FDA-Public Use
  Company Number: US-ACTELION-A-US2012-71048

PATIENT
  Age: 87 Year
  Sex: Female

DRUGS (5)
  1. TRACLEER [Suspect]
     Indication: PULMONARY ARTERIAL HYPERTENSION
     Dosage: 62.5
     Route: 048
     Dates: start: 20120731
  2. TRACLEER [Suspect]
     Dosage: 125
     Route: 048
  3. COUMADIN [Concomitant]
  4. ACETYLSALICYLIC ACID [Concomitant]
  5. LASIX [Concomitant]

REACTIONS (3)
  - Anticoagulation drug level below therapeutic [Recovered/Resolved]
  - Pulmonary embolism [Unknown]
  - Dyspnoea [Recovered/Resolved]
